FAERS Safety Report 11965606 (Version 1)
Quarter: 2016Q1

REPORT INFORMATION
  Report Type: Spontaneous
  Country: AU (occurrence: AU)
  Receive Date: 20160127
  Receipt Date: 20160127
  Transmission Date: 20160526
  Serious: Yes (Hospitalization)
  Sender: FDA-Public Use
  Company Number: AU-ABBVIE-16P-008-1546433-00

PATIENT
  Age: 14 Year
  Sex: Male

DRUGS (3)
  1. LAMOTRIGINE. [Interacting]
     Active Substance: LAMOTRIGINE
     Indication: SEIZURE
     Route: 048
  2. SODIUM VALPROATE [Suspect]
     Active Substance: VALPROATE SODIUM
     Indication: PETIT MAL EPILEPSY
     Route: 048
  3. SODIUM VALPROATE [Interacting]
     Active Substance: VALPROATE SODIUM
     Route: 048

REACTIONS (11)
  - Stevens-Johnson syndrome [Recovered/Resolved]
  - Rash erythematous [Recovered/Resolved]
  - Mucosal inflammation [Recovered/Resolved]
  - Myalgia [Recovered/Resolved]
  - Pyrexia [Recovered/Resolved]
  - Headache [Recovered/Resolved]
  - Drug interaction [Recovered/Resolved]
  - Mouth swelling [Recovered/Resolved]
  - Conjunctival disorder [Recovered/Resolved]
  - Rash pruritic [Recovered/Resolved]
  - Dry skin [Recovered/Resolved]
